FAERS Safety Report 8279095-3 (Version None)
Quarter: 2012Q2

REPORT INFORMATION
  Report Type: 
  Country: None (occurrence: None)
  Receive Date: 20120412
  Receipt Date: 20110418
  Transmission Date: 20120825
  Serious: No
  Sender: FDA-Public Use
  Company Number: US-ASTRAZENECA-2010SE55451

PATIENT
  Age: 64 Year
  Sex: Female

DRUGS (3)
  1. BLOOD PRESSURE MEDICATIONS [Concomitant]
  2. LORATADINE [Concomitant]
  3. NEXIUM [Suspect]
     Indication: GASTROOESOPHAGEAL REFLUX DISEASE
     Route: 048
     Dates: start: 20100901

REACTIONS (8)
  - DRUG DOSE OMISSION [None]
  - ORAL DISORDER [None]
  - HYPERHIDROSIS [None]
  - FLATULENCE [None]
  - REGURGITATION [None]
  - ABDOMINAL PAIN UPPER [None]
  - DRY MOUTH [None]
  - MUSCULAR WEAKNESS [None]
